FAERS Safety Report 19884629 (Version 2)
Quarter: 2021Q4

REPORT INFORMATION
  Report Type: Spontaneous
  Country: DE (occurrence: DE)
  Receive Date: 20210927
  Receipt Date: 20211220
  Transmission Date: 20220303
  Serious: Yes (Other)
  Sender: FDA-Public Use
  Company Number: DE-SANOFI-00775491

PATIENT
  Age: 56 Year
  Sex: Female

DRUGS (1)
  1. LEMTRADA [Suspect]
     Active Substance: ALEMTUZUMAB
     Dosage: UNK
     Dates: start: 2019

REACTIONS (2)
  - Myelodysplastic syndrome [Unknown]
  - Cytopenia [Unknown]

NARRATIVE: CASE EVENT DATE: 20210801
